FAERS Safety Report 5755805-1 (Version None)
Quarter: 2008Q2

REPORT INFORMATION
  Report Type: 
  Country: None (occurrence: None)
  Receive Date: 20080528
  Receipt Date: 20080516
  Transmission Date: 20081010
  Serious: Yes (Life-Threatening, Hospitalization, Other)
  Sender: FDA-Public Use
  Company Number: 2008SP006749

PATIENT
  Age: 8 Year
  Sex: Male
  Weight: 22.6799 kg

DRUGS (3)
  1. CLARITIN [Suspect]
     Indication: LACRIMATION INCREASED
     Dosage: 10 MG;ONCE;PO
     Route: 048
     Dates: start: 20080406, end: 20080406
  2. CLARITIN [Suspect]
     Indication: MULTIPLE ALLERGIES
     Dosage: 10 MG;ONCE;PO
     Route: 048
     Dates: start: 20080406, end: 20080406
  3. CLARITIN [Suspect]
     Indication: RHINORRHOEA
     Dosage: 10 MG;ONCE;PO
     Route: 048
     Dates: start: 20080406, end: 20080406

REACTIONS (1)
  - ANAPHYLACTIC SHOCK [None]
